FAERS Safety Report 7957796-1 (Version None)
Quarter: 2011Q4

REPORT INFORMATION
  Report Type: 
  Country: None (occurrence: None)
  Receive Date: 20111205
  Receipt Date: 20111130
  Transmission Date: 20120403
  Serious: Yes (Other)
  Sender: FDA-Public Use
  Company Number: GB-JNJFOC-20111200544

PATIENT
  Sex: Female

DRUGS (2)
  1. NICOTINE [Suspect]
     Indication: SMOKING CESSATION THERAPY
     Dosage: CURRENTLY 6-8 PIECES PER DAY
     Route: 048
     Dates: start: 20110201, end: 20110201
  2. NICOTINE [Suspect]
     Indication: SMOKING CESSATION THERAPY
     Dosage: CURRENTLY 6-8 PIECES PER DAY
     Route: 048
     Dates: start: 20110201

REACTIONS (4)
  - MALAISE [None]
  - NAUSEA [None]
  - DEPENDENCE [None]
  - DIZZINESS [None]
